FAERS Safety Report 13587269 (Version 1)
Quarter: 2017Q2

REPORT INFORMATION
  Report Type: Spontaneous
  Country: IT (occurrence: IT)
  Receive Date: 20170526
  Receipt Date: 20170526
  Transmission Date: 20170830
  Serious: Yes (Other)
  Sender: FDA-Public Use
  Company Number: IT-MYLANLABS-2017M1031950

PATIENT

DRUGS (1)
  1. PREDNISOLONE. [Suspect]
     Active Substance: PREDNISOLONE
     Indication: OCULAR MYASTHENIA
     Dosage: HIGH DOSE
     Route: 065
     Dates: start: 201411

REACTIONS (3)
  - Chorioretinal folds [Unknown]
  - Retinal detachment [Unknown]
  - Chorioretinopathy [Unknown]
